FAERS Safety Report 7570322-4 (Version None)
Quarter: 2011Q2

REPORT INFORMATION
  Report Type: 
  Country: None (occurrence: None)
  Receive Date: 20110620
  Receipt Date: 20110606
  Transmission Date: 20111010
  Serious: Yes (Hospitalization)
  Sender: FDA-Public Use
  Company Number: UTC-007675

PATIENT
  Age: 31 Year
  Sex: Female
  Weight: 48 kg

DRUGS (4)
  1. REVATIO [Concomitant]
  2. TRACLEER [Concomitant]
  3. TYVASO [Suspect]
     Indication: COR PULMONALE CHRONIC
     Dosage: 24 MCG (6 MCG,4 IN 1 D),INHALATION
     Route: 055
     Dates: start: 20100120
  4. DIURETICS (DIURETICS) [Concomitant]

REACTIONS (3)
  - ATELECTASIS [None]
  - HEADACHE [None]
  - HYPOPHAGIA [None]
